FAERS Safety Report 7402921-4 (Version None)
Quarter: 2011Q1

REPORT INFORMATION
  Report Type: 
  Country: None (occurrence: None)
  Receive Date: 20110331
  Receipt Date: 20110321
  Transmission Date: 20110831
  Serious: Yes (Hospitalization)
  Sender: FDA-Public Use
  Company Number: JPI-P-014261

PATIENT
  Age: 38 Year
  Sex: Female

DRUGS (4)
  1. XYREM [Suspect]
     Indication: SLEEP DISORDER
     Dosage: ORAL ; 9 GM (4.5 GM,2 IN 1 D),ORAL
     Route: 048
     Dates: start: 20080317
  2. METFORMIN [Suspect]
     Indication: OVARIAN CYST
     Dates: end: 20080701
  3. DEXTROAMPHETAMINE [Concomitant]
  4. VITAMIN D WITH CALCIUM [Concomitant]

REACTIONS (6)
  - WEIGHT DECREASED [None]
  - ABDOMINAL PAIN LOWER [None]
  - ABDOMINAL MASS [None]
  - INITIAL INSOMNIA [None]
  - WEIGHT INCREASED [None]
  - ALOPECIA [None]
